FAERS Safety Report 5365287-X (Version None)
Quarter: 2007Q2

REPORT INFORMATION
  Report Type: 
  Country: None (occurrence: None)
  Receive Date: 20070621
  Receipt Date: 20070613
  Transmission Date: 20071010
  Serious: Yes (Life-Threatening, Disabling)
  Sender: FDA-Public Use
  Company Number: GB-BAYER-200710658BNE

PATIENT
  Age: 50 Year
  Sex: Female
  Weight: 100 kg

DRUGS (20)
  1. CIPROFLOXACIN [Suspect]
     Indication: URINARY TRACT INFECTION
     Route: 048
     Dates: start: 20070508, end: 20070516
  2. ATORVASTATIN CALCIUM [Concomitant]
     Route: 048
     Dates: end: 20070403
  3. CEFUROXIME [Concomitant]
     Dosage: UNIT DOSE: 750 MG
     Route: 042
     Dates: start: 20070406, end: 20070410
  4. CITALOPRAM HYDROBROMIDE [Concomitant]
     Route: 048
     Dates: start: 20070418, end: 20070421
  5. CITALOPRAM HYDROBROMIDE [Concomitant]
     Route: 048
     Dates: end: 20070403
  6. CORSODYL [Concomitant]
     Dosage: UNIT DOSE: 10 ML
     Route: 048
     Dates: start: 20070418, end: 20070525
  7. CO-TENIDONE [Concomitant]
     Route: 048
     Dates: end: 20070403
  8. FRUSEMIDE [Concomitant]
     Route: 048
     Dates: start: 20070408, end: 20070521
  9. MIXTARD HUMAN 70/30 [Concomitant]
     Dosage: UNIT DOSE: 6 IU
     Route: 058
     Dates: start: 20070427, end: 20070510
  10. HYDROCORTISONE [Concomitant]
     Dosage: UNIT DOSE: 100 MG
     Route: 042
     Dates: start: 20070406, end: 20070407
  11. LACTULOSE [Concomitant]
     Dosage: UNIT DOSE: 30 ML
     Route: 048
     Dates: start: 20070406, end: 20070526
  12. METRONIDAZOLE [Concomitant]
     Dosage: UNIT DOSE: 500 MG
     Route: 042
     Dates: start: 20070406, end: 20070410
  13. OMEPRAZOLE [Concomitant]
     Route: 048
     Dates: start: 20070404, end: 20070425
  14. PABRINEX [Concomitant]
     Route: 042
     Dates: start: 20070403, end: 20070411
  15. PREDNISOLONE [Concomitant]
     Route: 048
     Dates: start: 20070407, end: 20070525
  16. RAMIPRIL [Concomitant]
     Route: 048
     Dates: end: 20070403
  17. SPIRONOLACTONE [Concomitant]
     Route: 048
     Dates: start: 20070404, end: 20070521
  18. THIAMINE [Concomitant]
     Route: 048
     Dates: start: 20070412, end: 20070526
  19. VITAMIN B CONCENTRATES [Concomitant]
     Route: 048
     Dates: start: 20070412, end: 20070525
  20. VITAMIN K [Concomitant]
     Route: 042
     Dates: start: 20070403, end: 20070404

REACTIONS (2)
  - RASH MACULAR [None]
  - TOXIC EPIDERMAL NECROLYSIS [None]
